FAERS Safety Report 6312003-0 (Version None)
Quarter: 2009Q3

REPORT INFORMATION
  Report Type: 
  Country: None (occurrence: None)
  Receive Date: 20090817
  Receipt Date: 20090515
  Transmission Date: 20100115
  Serious: No
  Sender: FDA-Public Use
  Company Number: US-BRISTOL-MYERS SQUIBB COMPANY-14630529

PATIENT
  Sex: Female

DRUGS (1)
  1. ESTRACE [Suspect]
     Dosage: ESTRACE PILLS

REACTIONS (3)
  - BLOOD OESTROGEN INCREASED [None]
  - CARDIAC FLUTTER [None]
  - PALPITATIONS [None]
